FAERS Safety Report 19963390 (Version 4)
Quarter: 2025Q3

REPORT INFORMATION
  Report Type: Report from Study
  Country: EU (occurrence: EU)
  Receive Date: 20211018
  Receipt Date: 20250711
  Transmission Date: 20251020
  Serious: Yes (Hospitalization)
  Sender: AUROBINDO
  Company Number: EU-TEVA-2021-CZ-1959558

PATIENT
  Age: 39 Year
  Sex: Male

DRUGS (9)
  1. SUMATRIPTAN [Suspect]
     Active Substance: SUMATRIPTAN
     Indication: Migraine
     Route: 058
  2. SUMATRIPTAN [Suspect]
     Active Substance: SUMATRIPTAN
     Route: 048
  3. CINNARIZINE [Suspect]
     Active Substance: CINNARIZINE
     Indication: Migraine prophylaxis
     Dosage: 25 MILLIGRAM, ONCE A DAY(25 MILLIGRAM DAILY)
     Route: 065
     Dates: start: 201805
  4. VENLAFAXINE [Suspect]
     Active Substance: VENLAFAXINE HYDROCHLORIDE
     Indication: Migraine prophylaxis
     Dosage: 75 MILLIGRAM, ONCE A DAY
     Route: 065
     Dates: start: 202001
  5. AMITRIPTYLINE [Suspect]
     Active Substance: AMITRIPTYLINE
     Indication: Migraine prophylaxis
     Dosage: 25 MILLIGRAM, ONCE A DAY(25 MILLIGRAM DAILY)
     Route: 065
     Dates: start: 201808
  6. AMITRIPTYLINE [Suspect]
     Active Substance: AMITRIPTYLINE
     Dosage: 25 MILLIGRAM, ONCE A DAY(25 MILLIGRAM DAILY)
     Route: 065
     Dates: start: 201812
  7. VALPROIC ACID [Suspect]
     Active Substance: VALPROIC ACID
     Indication: Migraine prophylaxis
     Dosage: 600 MILLIGRAM, ONCE A DAY
     Route: 065
     Dates: start: 202005, end: 202008
  8. IBUPROFEN [Concomitant]
     Active Substance: IBUPROFEN
     Indication: Migraine
     Route: 065
  9. ELETRIPTAN [Concomitant]
     Active Substance: ELETRIPTAN
     Indication: Migraine
     Route: 065

REACTIONS (4)
  - Migraine [Unknown]
  - Medication overuse headache [Unknown]
  - Drug ineffective [Unknown]
  - Extra dose administered [Unknown]
